FAERS Safety Report 21790427 (Version 1)
Quarter: 2022Q4

REPORT INFORMATION
  Report Type: Report from Study
  Country: IT (occurrence: IT)
  Receive Date: 20221228
  Receipt Date: 20221228
  Transmission Date: 20230113
  Serious: Yes (Other)
  Sender: FDA-Public Use
  Company Number: IT-DSJP-DSU-2022-141991

PATIENT
  Age: 52 Year
  Sex: Female
  Weight: 61 kg

DRUGS (2)
  1. ENHERTU [Suspect]
     Active Substance: FAM-TRASTUZUMAB DERUXTECAN-NXKI
     Indication: HER2 positive breast cancer
     Dosage: 5.4 UNK, ONCE EVERY 3 WK
     Route: 042
     Dates: start: 20211206, end: 20220620
  2. ENTECAVIR [Concomitant]
     Active Substance: ENTECAVIR
     Indication: Hepatitis B
     Dosage: 0.5 MG, QD
     Route: 048
     Dates: start: 200807

REACTIONS (2)
  - Keratitis [Not Recovered/Not Resolved]
  - Ocular toxicity [Recovering/Resolving]

NARRATIVE: CASE EVENT DATE: 20220627
